FAERS Safety Report 18983604 (Version 1)
Quarter: 2021Q1

REPORT INFORMATION
  Report Type: Spontaneous
  Country: JP (occurrence: JP)
  Receive Date: 20210308
  Receipt Date: 20210308
  Transmission Date: 20210420
  Serious: Yes (Death, Hospitalization, Other)
  Sender: FDA-Public Use
  Company Number: JP-ANIPHARMA-2021-JP-000055

PATIENT
  Age: 90 Year
  Sex: Female

DRUGS (5)
  1. DIPYRIDAMOLE (NON?SPECIFIC) [Suspect]
     Active Substance: DIPYRIDAMOLE
     Indication: PRODUCT USED FOR UNKNOWN INDICATION
     Dosage: 300 MG DAILY
  2. OLMESARTAN [Concomitant]
     Active Substance: OLMESARTAN
  3. DONEPEZIL. [Concomitant]
     Active Substance: DONEPEZIL
  4. BROTIZOLAM [Concomitant]
     Active Substance: BROTIZOLAM
  5. TIAPRIDE [Concomitant]
     Active Substance: TIAPRIDE

REACTIONS (2)
  - Haematoma [Fatal]
  - Coagulopathy [Fatal]
